FAERS Safety Report 7870379-7 (Version None)
Quarter: 2011Q4

REPORT INFORMATION
  Report Type: 
  Country: None (occurrence: None)
  Receive Date: 20111029
  Receipt Date: 20110308
  Transmission Date: 20120403
  Serious: No
  Sender: FDA-Public Use
  Company Number: US-AMGEN-USASP2011013016

PATIENT
  Age: 49 Year
  Sex: Male

DRUGS (2)
  1. TREXALL [Concomitant]
     Dosage: 7 MG, QWK
     Dates: start: 20091001
  2. ENBREL [Suspect]
     Indication: ANKYLOSING SPONDYLITIS
     Dosage: 50 MG, QWK
     Dates: start: 20110201

REACTIONS (1)
  - ANKYLOSING SPONDYLITIS [None]
